FAERS Safety Report 7928199-0 (Version None)
Quarter: 2011Q4

REPORT INFORMATION
  Report Type: 
  Country: None (occurrence: None)
  Receive Date: 20111118
  Receipt Date: 20111110
  Transmission Date: 20120403
  Serious: Yes (Other)
  Sender: FDA-Public Use
  Company Number: GB-JNJFOC-20111106572

PATIENT
  Sex: Female

DRUGS (2)
  1. NICORETTE [Suspect]
     Indication: SMOKING CESSATION THERAPY
     Route: 048
     Dates: start: 20110101
  2. NICORETTE [Suspect]
     Route: 048
     Dates: start: 20110101, end: 20110101

REACTIONS (7)
  - DRY MOUTH [None]
  - EAR PAIN [None]
  - DIZZINESS [None]
  - TOOTHACHE [None]
  - PAIN IN EXTREMITY [None]
  - SYNCOPE [None]
  - HEADACHE [None]
